FAERS Safety Report 4525619-9 (Version None)
Quarter: 2004Q4

REPORT INFORMATION
  Report Type: 
  Country: None (occurrence: None)
  Receive Date: 20041116
  Receipt Date: 20041008
  Transmission Date: 20050328
  Serious: No
  Sender: FDA-Public Use
  Company Number: S04-USA-06674-01

PATIENT
  Age: 42 Year
  Sex: Male

DRUGS (10)
  1. NAMENDA [Suspect]
     Indication: DEMENTIA
     Dosage: 5 MG QD PO
     Route: 048
     Dates: start: 20040901, end: 20040101
  2. NAMENDA [Suspect]
     Indication: DEMENTIA
     Dosage: 10 MG QD PO
     Route: 048
     Dates: start: 20040101
  3. DONNATAL [Suspect]
     Indication: CROHN'S DISEASE
  4. PENTASA [Concomitant]
  5. LIPITOR [Concomitant]
  6. LEXAPRO [Concomitant]
  7. PLAVIX [Concomitant]
  8. LAMICTAL [Concomitant]
  9. MIRAPEX [Concomitant]
  10. PROTONIX [Concomitant]

REACTIONS (1)
  - LIBIDO DECREASED [None]
